FAERS Safety Report 9700720 (Version 2)
Quarter: 2013Q4

REPORT INFORMATION
  Report Type: Spontaneous
  Country: US (occurrence: US)
  Receive Date: 20131121
  Receipt Date: 20131219
  Transmission Date: 20140711
  Serious: No
  Sender: FDA-Public Use
  Company Number: US-PFIZER INC-2013332065

PATIENT
  Sex: Female
  Weight: 79.37 kg

DRUGS (3)
  1. NEURONTIN [Suspect]
     Indication: CONVULSION
     Dosage: UNKNOWN DOSE 4 TABLETS IN A DAY
  2. NEURONTIN [Suspect]
     Dosage: UNK
  3. GABAPENTIN [Suspect]
     Dosage: UNK

REACTIONS (2)
  - Emotional disorder [Unknown]
  - Drug effect incomplete [Unknown]
